FAERS Safety Report 6407838-X (Version None)
Quarter: 2009Q4

REPORT INFORMATION
  Report Type: 
  Country: None (occurrence: None)
  Receive Date: 20091015
  Receipt Date: 20091007
  Transmission Date: 20100525
  Serious: Yes (Other)
  Sender: FDA-Public Use
  Company Number: 2009-04185

PATIENT
  Age: 67 Year
  Sex: Male

DRUGS (5)
  1. VELCADE [Suspect]
     Indication: MULTIPLE MYELOMA
     Dates: start: 20090601
  2. REVLIMID [Suspect]
     Indication: MULTIPLE MYELOMA
     Dosage: 25 MG, ORAL , 15 MG, ORAL ,  10 MG, ORAL
     Route: 048
     Dates: start: 20090301, end: 20090601
  3. REVLIMID [Suspect]
     Indication: MULTIPLE MYELOMA
     Dosage: 25 MG, ORAL , 15 MG, ORAL ,  10 MG, ORAL
     Route: 048
     Dates: start: 20090601, end: 20090801
  4. REVLIMID [Suspect]
     Indication: MULTIPLE MYELOMA
     Dosage: 25 MG, ORAL , 15 MG, ORAL ,  10 MG, ORAL
     Route: 048
     Dates: start: 20090801
  5. DEXAMETHASONE TAB [Suspect]
     Indication: MULTIPLE MYELOMA
     Dates: start: 20090301, end: 20090801

REACTIONS (4)
  - BALANCE DISORDER [None]
  - DEEP VEIN THROMBOSIS [None]
  - PANCYTOPENIA [None]
  - PARAESTHESIA [None]
